FAERS Safety Report 5444561-2 (Version None)
Quarter: 2007Q3

REPORT INFORMATION
  Report Type: 
  Country: None (occurrence: None)
  Receive Date: 20070904
  Receipt Date: 20070904
  Transmission Date: 20080115
  Serious: Yes (Hospitalization)
  Sender: FDA-Public Use
  Company Number: None

PATIENT
  Age: 61 Year
  Sex: Male
  Weight: 63.5 kg

DRUGS (2)
  1. TEKTURNA [Suspect]
     Indication: HYPERTENSION
     Dosage: 150 MG  DAILY  PO
     Route: 048
     Dates: start: 20070601, end: 20070729
  2. LISINOPRIL [Suspect]
     Indication: HYPERTENSION
     Dosage: (DATES OF USE/DURATION:  1 YEAR PRIOR TO EVENT)

REACTIONS (3)
  - DROOLING [None]
  - DYSPHAGIA [None]
  - SWOLLEN TONGUE [None]
